FAERS Safety Report 10663811 (Version 1)
Quarter: 2014Q4

REPORT INFORMATION
  Report Type: Spontaneous
  Country: US (occurrence: US)
  Receive Date: 20141219
  Receipt Date: 20141219
  Transmission Date: 20150529
  Serious: No
  Sender: FDA-Public Use
  Company Number: US-TEVA-517844USA

PATIENT
  Sex: Female

DRUGS (1)
  1. NAPROXEN. [Suspect]
     Active Substance: NAPROXEN

REACTIONS (4)
  - Hypersensitivity [Unknown]
  - Rash generalised [Unknown]
  - Rash [Recovered/Resolved]
  - Peripheral swelling [Unknown]
